FAERS Safety Report 6586162-9 (Version None)
Quarter: 2010Q1

REPORT INFORMATION
  Report Type: 
  Country: None (occurrence: None)
  Receive Date: 20100217
  Receipt Date: 20090105
  Transmission Date: 20100710
  Serious: No
  Sender: FDA-Public Use
  Company Number: US-ALLERGAN-0900116US

PATIENT
  Sex: Female

DRUGS (2)
  1. BOTOX [Suspect]
     Indication: DRUG USE FOR UNKNOWN INDICATION
     Dosage: UNK, SINGLE
     Route: 030
     Dates: start: 20081105, end: 20081105
  2. JUVEDERM [Concomitant]
     Dosage: UNK, SINGLE
     Dates: start: 20081105, end: 20081105

REACTIONS (2)
  - RASH [None]
  - SCAB [None]
